FAERS Safety Report 7740944-6 (Version None)
Quarter: 2011Q3

REPORT INFORMATION
  Report Type: 
  Country: None (occurrence: None)
  Receive Date: 20110909
  Receipt Date: 20110830
  Transmission Date: 20111222
  Serious: Yes (Hospitalization)
  Sender: FDA-Public Use
  Company Number: PHHY2008JP26099

PATIENT
  Sex: Male

DRUGS (8)
  1. ALLOPURINOL [Concomitant]
     Indication: HYPERURICAEMIA
     Dosage: 1 DF, UNK
     Route: 048
     Dates: start: 20060405
  2. RABEPRAZOLE SODIUM [Concomitant]
     Indication: PROPHYLAXIS AGAINST GASTROINTESTINAL ULCER
     Dosage: 1 DF, UNK
     Route: 048
     Dates: start: 20060306
  3. CELL CEPT [Concomitant]
     Indication: RENAL TRANSPLANT
     Dosage: 2 G,
     Route: 048
     Dates: start: 20080304
  4. SIMULECT [Suspect]
     Dosage: 20 MG, UNK
     Route: 042
     Dates: start: 20060304
  5. PREDNISOLONE [Concomitant]
     Indication: RENAL TRANSPLANT
     Dosage: 60 MG, UNK
     Route: 048
     Dates: start: 20060304
  6. SIMULECT [Suspect]
     Dosage: 20 MG, UNK
     Route: 037
     Dates: start: 20060308, end: 20060308
  7. PROGRAF [Concomitant]
     Indication: RENAL TRANSPLANT
     Dosage: UNK UKN, UNK
     Route: 048
     Dates: start: 20060304
  8. AMLODIPINE [Concomitant]
     Indication: HYPERTENSION
     Dosage: 2 DF,
     Route: 048
     Dates: start: 20060411

REACTIONS (1)
  - KIDNEY TRANSPLANT REJECTION [None]
